FAERS Safety Report 8024185-3 (Version None)
Quarter: 2012Q1

REPORT INFORMATION
  Report Type: 
  Country: None (occurrence: None)
  Receive Date: 20120105
  Receipt Date: 20111228
  Transmission Date: 20120608
  Serious: Yes (Other)
  Sender: FDA-Public Use
  Company Number: PHFR2011IE006517

PATIENT
  Sex: Male

DRUGS (5)
  1. CALCIUM CARBONATE [Concomitant]
     Route: 048
  2. VALPROATE SODIUM [Concomitant]
     Indication: DEPRESSION
     Dosage: 300 MG
     Route: 048
  3. CLOZARIL [Suspect]
     Indication: SCHIZOPHRENIA, PARANOID TYPE
     Dosage: 300 MG
     Route: 048
     Dates: start: 20080213
  4. OMACOR [Concomitant]
     Route: 048
  5. CARDICOR [Concomitant]
     Dosage: 2.5 MG

REACTIONS (3)
  - OROPHARYNGEAL PAIN [None]
  - UPPER RESPIRATORY TRACT INFECTION [None]
  - NEUTROPENIA [None]
